FAERS Safety Report 14028413 (Version 1)
Quarter: 2017Q3

REPORT INFORMATION
  Report Type: Spontaneous
  Country: GB (occurrence: GB)
  Receive Date: 20170930
  Receipt Date: 20170930
  Transmission Date: 20171128
  Serious: Yes (Other)
  Sender: FDA-Public Use
  Company Number: GB-DRREDDYS-GER/UKI/17/0093283

PATIENT
  Age: 42 Year
  Sex: Male

DRUGS (2)
  1. ARIPIPRAZOLE. [Suspect]
     Active Substance: ARIPIPRAZOLE
     Indication: PSYCHOTIC DISORDER
  2. OLANZAPINE. [Suspect]
     Active Substance: OLANZAPINE
     Indication: PRODUCT USED FOR UNKNOWN INDICATION

REACTIONS (14)
  - Neuroleptic malignant syndrome [Unknown]
  - Dysphagia [Unknown]
  - Diarrhoea [Unknown]
  - Withdrawal syndrome [Unknown]
  - Depressed level of consciousness [Unknown]
  - Cerebral disorder [Unknown]
  - Seizure [Unknown]
  - Unresponsive to stimuli [Unknown]
  - Dyskinesia [Unknown]
  - Pneumonia [Unknown]
  - Electroencephalogram abnormal [Unknown]
  - Dermatitis allergic [Unknown]
  - Therapy non-responder [Unknown]
  - Clostridium difficile infection [Unknown]
